FAERS Safety Report 24896322 (Version 3)
Quarter: 2025Q1

REPORT INFORMATION
  Report Type: Report from Study
  Country: US (occurrence: US)
  Receive Date: 20250128
  Receipt Date: 20250313
  Transmission Date: 20250409
  Serious: Yes (Other)
  Sender: RADIUS PHARM
  Company Number: US-RADIUS HEALTH INC.-2025US000494

PATIENT
  Age: 78 Year
  Sex: Female

DRUGS (1)
  1. TYMLOS [Suspect]
     Active Substance: ABALOPARATIDE
     Indication: Osteoporosis postmenopausal
     Route: 058
     Dates: start: 20250101

REACTIONS (2)
  - Thrombosis [Unknown]
  - Chest discomfort [Unknown]

NARRATIVE: CASE EVENT DATE: 20250101
